FAERS Safety Report 7967943-3 (Version None)
Quarter: 2011Q4

REPORT INFORMATION
  Report Type: 
  Country: None (occurrence: None)
  Receive Date: 20111207
  Receipt Date: 20111122
  Transmission Date: 20120403
  Serious: Yes (Other)
  Sender: FDA-Public Use
  Company Number: THQ2011A07872

PATIENT
  Age: 49 Year
  Sex: Male

DRUGS (4)
  1. SULFATE [Concomitant]
  2. LANSOPRAZOLE [Suspect]
     Indication: PRODUCT USED FOR UNKNOWN INDICATION
     Dates: start: 20111114
  3. DEXAMETHASONE, NEOMYCIN SULFATE [Concomitant]
  4. RANITIDINE [Concomitant]

REACTIONS (1)
  - BALANITIS [None]
